FAERS Safety Report 14838116 (Version 1)
Quarter: 2018Q2

REPORT INFORMATION
  Report Type: Spontaneous
  Country: US (occurrence: US)
  Receive Date: 20180417
  Receipt Date: 20180417
  Transmission Date: 20180711
  Serious: Yes (Death)
  Sender: FDA-Public Use
  Company Number: None

PATIENT
  Sex: Male

DRUGS (15)
  1. CARVEDILOL. [Concomitant]
     Active Substance: CARVEDILOL
  2. TOUJEO [Concomitant]
     Active Substance: INSULIN GLARGINE
  3. AMIODARONE [Concomitant]
     Active Substance: AMIODARONE
  4. LEVOTHYROXIN [Concomitant]
     Active Substance: LEVOTHYROXINE
  5. ROSUVASTATIN. [Concomitant]
     Active Substance: ROSUVASTATIN
  6. BUPROPION. [Concomitant]
     Active Substance: BUPROPION
  7. HYDROXYCHLOR [Concomitant]
     Active Substance: HYDROXYCHLOROQUINE
  8. XOLAIR [Concomitant]
     Active Substance: OMALIZUMAB
  9. ATORVASTATIN [Concomitant]
     Active Substance: ATORVASTATIN
  10. ELIQUIS [Concomitant]
     Active Substance: APIXABAN
  11. SUTENT [Suspect]
     Active Substance: SUNITINIB MALATE
     Indication: TYPE V HYPERLIPIDAEMIA
     Route: 048
     Dates: start: 20180306
  12. FINASTERIDE. [Concomitant]
     Active Substance: FINASTERIDE
  13. FUROSEMIDE. [Concomitant]
     Active Substance: FUROSEMIDE
  14. MONTELUKAST [Concomitant]
     Active Substance: MONTELUKAST SODIUM
  15. CIMETIDINE [Concomitant]
     Active Substance: CIMETIDINE

REACTIONS (1)
  - Death [None]
